FAERS Safety Report 11050554 (Version 1)
Quarter: 2015Q2

REPORT INFORMATION
  Report Type: Spontaneous
  Country: US (occurrence: None)
  Receive Date: 20150420
  Receipt Date: 20150420
  Transmission Date: 20150821
  Serious: No
  Sender: FDA-Public Use
  Company Number: None

PATIENT
  Age: 65 Year
  Sex: Female
  Weight: 70.31 kg

DRUGS (2)
  1. TROPICAMIDE 5% AKORN [Suspect]
     Active Substance: TROPICAMIDE
     Indication: PUPIL DILATION PROCEDURE
     Dosage: ONCE DAILY INTO THE EYE
     Dates: start: 20150312, end: 20150314
  2. PHENYLEPHRINE [Suspect]
     Active Substance: PHENYLEPHRINE\PHENYLEPHRINE HYDROCHLORIDE

REACTIONS (3)
  - Eye discharge [None]
  - Vision blurred [None]
  - Photosensitivity reaction [None]

NARRATIVE: CASE EVENT DATE: 20150313
